FAERS Safety Report 11466824 (Version 2)
Quarter: 2018Q1

REPORT INFORMATION
  Report Type: Report from Study
  Country: None (occurrence: US)
  Receive Date: 20150908
  Receipt Date: 20180116
  Transmission Date: 20180508
  Serious: Yes (Other)
  Sender: FDA-Public Use
  Company Number: US-ABBVIE-15K-163-1456820-00

PATIENT
  Age: 56 Year
  Sex: Female

DRUGS (1)
  1. HUMIRA [Suspect]
     Active Substance: ADALIMUMAB
     Indication: CROHN^S DISEASE
     Dosage: 1 PEN
     Route: 058
     Dates: start: 20150803

REACTIONS (2)
  - Joint injury [Unknown]
  - Skeletal injury [Unknown]

NARRATIVE: CASE EVENT DATE: 201508
